FAERS Safety Report 8856413 (Version 1)
Quarter: 2012Q4

REPORT INFORMATION
  Report Type: 
  Country: US (occurrence: US)
  Receive Date: 20121023
  Receipt Date: 20121023
  Transmission Date: 20130627
  Serious: No
  Sender: FDA-Public Use
  Company Number: US-AMGEN-USASP2012057117

PATIENT
  Age: 73 Year
  Sex: Female

DRUGS (8)
  1. ENBREL [Suspect]
     Indication: PRODUCT USED FOR UNKNOWN INDICATION
     Dosage: 50 mg, qwk
     Route: 058
     Dates: start: 2012
  2. BENAZEPRIL [Concomitant]
     Dosage: 40 mg, UNK
  3. METOPROLOL TARTRATE [Concomitant]
     Dosage: 25 mg, UNK
  4. VITAMIN D /00107901/ [Concomitant]
     Dosage: 5000 unit, UNK
  5. ASA [Concomitant]
     Dosage: 81 mg, UNK
  6. ZETIA [Concomitant]
     Dosage: 10 mg, UNK
  7. PEPCID AC [Concomitant]
     Dosage: 20 mg, UNK
  8. CRESTOR [Concomitant]
     Dosage: 10 mg, UNK

REACTIONS (1)
  - Fatigue [Unknown]
